FAERS Safety Report 4440606-7 (Version None)
Quarter: 2004Q3

REPORT INFORMATION
  Report Type: 
  Country: None (occurrence: None)
  Receive Date: 20040831
  Receipt Date: 20040708
  Transmission Date: 20050211
  Serious: Yes (Death)
  Sender: FDA-Public Use
  Company Number: USA040670361

PATIENT
  Age: 47 Year
  Sex: Male
  Weight: 70 kg

DRUGS (5)
  1. SYMBYAX [Suspect]
     Indication: SCHIZOPHRENIA
     Dates: start: 20040505
  2. CLONOPIN (CLONAZEPAM) [Concomitant]
  3. ZANTAC [Concomitant]
  4. VITAMIN B12 FOR INJECTION (CYANOCOBALAMIN) [Concomitant]
  5. IRON [Concomitant]

REACTIONS (4)
  - COUGH [None]
  - LETHARGY [None]
  - MYOCARDIAL INFARCTION [None]
  - URINARY RETENTION [None]
